FAERS Safety Report 13964440 (Version 1)
Quarter: 2017Q3

REPORT INFORMATION
  Report Type: Spontaneous
  Country: US (occurrence: US)
  Receive Date: 20170913
  Receipt Date: 20170913
  Transmission Date: 20171128
  Serious: Yes (Life-Threatening, Disabling)
  Sender: FDA-Public Use
  Company Number: None

PATIENT
  Age: 63 Year
  Weight: 89.1 kg

DRUGS (6)
  1. LUNESTA [Concomitant]
     Active Substance: ESZOPICLONE
  2. PREDNISONE. [Concomitant]
     Active Substance: PREDNISONE
  3. VYTORIN [Suspect]
     Active Substance: EZETIMIBE\SIMVASTATIN
     Indication: BLOOD CHOLESTEROL INCREASED
     Dosage: ?          QUANTITY:1 TABLET(S);?
     Route: 048
     Dates: start: 20120903
  4. AZATHIOPRINE. [Suspect]
     Active Substance: AZATHIOPRINE
  5. CIALIS [Concomitant]
     Active Substance: TADALAFIL
  6. WELLBUTRIN [Concomitant]
     Active Substance: BUPROPION HYDROCHLORIDE

REACTIONS (1)
  - Autoimmune hepatitis [None]

NARRATIVE: CASE EVENT DATE: 20170303
